FAERS Safety Report 22131164 (Version 1)
Quarter: 2023Q1

REPORT INFORMATION
  Report Type: Spontaneous
  Country: US (occurrence: None)
  Receive Date: 20230322
  Receipt Date: 20230322
  Transmission Date: 20230418
  Serious: No
  Sender: FDA-Public Use
  Company Number: None

PATIENT
  Age: 74 Year
  Sex: Male

DRUGS (1)
  1. MORPHINE [Suspect]
     Active Substance: MORPHINE
     Indication: Pain
     Dates: start: 20230306, end: 20230306

REACTIONS (2)
  - Erythema [None]
  - Therapy cessation [None]

NARRATIVE: CASE EVENT DATE: 20230306
